FAERS Safety Report 9054216 (Version 2)
Quarter: 2013Q1

REPORT INFORMATION
  Report Type: Spontaneous
  Country: US (occurrence: US)
  Receive Date: 20130122
  Receipt Date: 20130122
  Transmission Date: 20140127
  Serious: No
  Sender: FDA-Public Use
  Company Number: US-ASTRAZENECA-2012SE27853

PATIENT
  Age: 64 Year
  Sex: Female

DRUGS (2)
  1. SYMBICORT PMDI [Suspect]
     Dosage: UNKNOWN
     Route: 055
  2. PRILOSEC [Suspect]
     Route: 048

REACTIONS (4)
  - Asthma [Unknown]
  - Muscle spasms [Unknown]
  - Malaise [Unknown]
  - Drug hypersensitivity [Unknown]
